FAERS Safety Report 13617436 (Version 1)
Quarter: 2017Q2

REPORT INFORMATION
  Report Type: Spontaneous
  Country: US (occurrence: US)
  Receive Date: 20170606
  Receipt Date: 20170606
  Transmission Date: 20170830
  Serious: No
  Sender: FDA-Public Use
  Company Number: US-SA-2017SA038143

PATIENT
  Age: 76 Year
  Sex: Male

DRUGS (3)
  1. SOLOSTAR [Suspect]
     Active Substance: DEVICE
     Indication: TYPE 2 DIABETES MELLITUS
  2. LANTUS SOLOSTAR [Suspect]
     Active Substance: INSULIN GLARGINE
     Indication: TYPE 2 DIABETES MELLITUS
     Dosage: 15 UNITS, 25 UNITS
     Route: 051
  3. LANTUS SOLOSTAR [Suspect]
     Active Substance: INSULIN GLARGINE
     Indication: TYPE 2 DIABETES MELLITUS
     Dosage: DEPENDING ON WHAT HIS BLOOD SUGAR READINGS ARE DOSE:35 UNIT(S)
     Route: 051
     Dates: start: 2016

REACTIONS (5)
  - Product use issue [Unknown]
  - Blood glucose decreased [Unknown]
  - Blood glucose increased [Unknown]
  - Wrong technique in product usage process [Unknown]
  - Asthenia [Unknown]

NARRATIVE: CASE EVENT DATE: 2016
